FAERS Safety Report 12964313 (Version 1)
Quarter: 2016Q4

REPORT INFORMATION
  Report Type: Spontaneous
  Country: US (occurrence: US)
  Receive Date: 20161122
  Receipt Date: 20161122
  Transmission Date: 20170207
  Serious: No
  Sender: FDA-Public Use
  Company Number: US-PFIZER INC-2016451745

PATIENT
  Age: 83 Year
  Sex: Female

DRUGS (1)
  1. DOFETILIDE. [Suspect]
     Active Substance: DOFETILIDE
     Dosage: 125 UG, 2X/DAY

REACTIONS (4)
  - Sleep apnoea syndrome [Unknown]
  - Dyspnoea [Unknown]
  - Pruritus generalised [Unknown]
  - Fatigue [Unknown]
